FAERS Safety Report 5108980-6 (Version None)
Quarter: 2006Q3

REPORT INFORMATION
  Report Type: 
  Country: None (occurrence: None)
  Receive Date: 20060920
  Receipt Date: 20060728
  Transmission Date: 20061208
  Serious: Yes (Hospitalization)
  Sender: FDA-Public Use
  Company Number: US-AMGEN-STX188349

PATIENT
  Sex: Female

DRUGS (2)
  1. ENBREL [Suspect]
     Indication: RHEUMATOID ARTHRITIS
     Route: 058
     Dates: start: 20000201
  2. ARAVA [Concomitant]
     Indication: RHEUMATOID ARTHRITIS
     Dates: start: 19990101

REACTIONS (1)
  - OSTEOARTHRITIS [None]
